FAERS Safety Report 12838850 (Version 2)
Quarter: 2016Q4

REPORT INFORMATION
  Report Type: Spontaneous
  Country: US (occurrence: US)
  Receive Date: 20161012
  Receipt Date: 20161212
  Transmission Date: 20170207
  Serious: No
  Sender: FDA-Public Use
  Company Number: US-PFIZER INC-2016467035

PATIENT
  Age: 27 Year
  Sex: Female
  Weight: 64 kg

DRUGS (5)
  1. TYLENOL [Concomitant]
     Active Substance: ACETAMINOPHEN
     Dosage: UNK
  2. ADVIL [Suspect]
     Active Substance: IBUPROFEN
     Indication: HEADACHE
     Dosage: 200 MG, 1X/DAY
     Route: 048
  3. ADVIL [Suspect]
     Active Substance: IBUPROFEN
     Dosage: 400 MG, UNK
     Route: 048
  4. ADVIL [Suspect]
     Active Substance: IBUPROFEN
     Dosage: 200 MG, 2X/DAY(SOMETIMES, 1 IN THE EVENING AND 1 IN THE MORNING)
     Route: 048
  5. ADVIL [Suspect]
     Active Substance: IBUPROFEN
     Dosage: 2 DF, 4X/DAY

REACTIONS (1)
  - Drug ineffective [Not Recovered/Not Resolved]

NARRATIVE: CASE EVENT DATE: 201609
